FAERS Safety Report 18898068 (Version 1)
Quarter: 2021Q1

REPORT INFORMATION
  Report Type: Spontaneous
  Country: US (occurrence: US)
  Receive Date: 20210213
  Receipt Date: 20210213
  Transmission Date: 20210420
  Serious: Yes (Hospitalization, Other)
  Sender: FDA-Public Use
  Company Number: None

PATIENT
  Sex: Female

DRUGS (6)
  1. CIMZIA [Suspect]
     Active Substance: CERTOLIZUMAB PEGOL
     Indication: PSORIATIC ARTHROPATHY
     Dosage: ?          OTHER FREQUENCY:QOW;?
     Route: 058
     Dates: start: 20200321
  2. HCTZ [Concomitant]
     Active Substance: HYDROCHLOROTHIAZIDE
  3. VITAMIN B12 [Concomitant]
     Active Substance: CYANOCOBALAMIN
  4. GABAPENTIN. [Concomitant]
     Active Substance: GABAPENTIN
  5. DICLOFENAC [Concomitant]
     Active Substance: DICLOFENAC
  6. LANSOPRAZOLE DR [Concomitant]
     Active Substance: LANSOPRAZOLE

REACTIONS (3)
  - Psoriatic arthropathy [None]
  - COVID-19 [None]
  - Therapy interrupted [None]
